FAERS Safety Report 18533436 (Version 1)
Quarter: 2020Q4

REPORT INFORMATION
  Report Type: Spontaneous
  Country: US (occurrence: US)
  Receive Date: 20201123
  Receipt Date: 20201123
  Transmission Date: 20210114
  Serious: No
  Sender: FDA-Public Use
  Company Number: US-COHERUS BIOSCIENCES, INC-2020US005774

PATIENT

DRUGS (19)
  1. PREDNISONE ACETATE [Concomitant]
     Active Substance: PREDNISONE ACETATE
     Dosage: UNK
     Dates: start: 202007
  2. UDENYCA [Suspect]
     Active Substance: PEGFILGRASTIM-CBQV
     Indication: INFECTION PROPHYLAXIS
     Dosage: 6 MG/0.6 ML
     Route: 058
     Dates: start: 20200727
  3. ETOPOSIDE PHOSPHATE [Concomitant]
     Active Substance: ETOPOSIDE PHOSPHATE
     Dosage: UNK
     Dates: start: 2020
  4. ONCOVIN [Concomitant]
     Active Substance: VINCRISTINE SULFATE
     Dosage: UNK
     Dates: start: 2020
  5. PREDNISONE ACETATE [Concomitant]
     Active Substance: PREDNISONE ACETATE
     Dosage: UNK
     Dates: start: 2020
  6. ONCOVIN [Concomitant]
     Active Substance: VINCRISTINE SULFATE
     Dosage: UNK
     Dates: start: 2020
  7. UDENYCA [Suspect]
     Active Substance: PEGFILGRASTIM-CBQV
     Dosage: 6 MG/0.6 ML
     Route: 058
     Dates: start: 20200928
  8. CYTOXAN [Concomitant]
     Active Substance: CYCLOPHOSPHAMIDE
     Dosage: UNK
     Dates: start: 2020
  9. ETOPOSIDE PHOSPHATE [Concomitant]
     Active Substance: ETOPOSIDE PHOSPHATE
     Dosage: UNK
     Dates: start: 202007
  10. PREDNISONE ACETATE [Concomitant]
     Active Substance: PREDNISONE ACETATE
     Dosage: UNK
     Dates: start: 2020
  11. DOXORUBICIN CITRATE [Concomitant]
     Active Substance: DOXORUBICIN CITRATE
     Dosage: UNK
     Dates: start: 202007
  12. ETOPOSIDE PHOSPHATE [Concomitant]
     Active Substance: ETOPOSIDE PHOSPHATE
     Dosage: UNK
     Dates: start: 2020
  13. UDENYCA [Suspect]
     Active Substance: PEGFILGRASTIM-CBQV
     Dosage: 6 MG/0.6 ML
     Route: 058
     Dates: start: 2020
  14. UDENYCA [Suspect]
     Active Substance: PEGFILGRASTIM-CBQV
     Dosage: 6 MG/0.6 ML
     Route: 058
     Dates: start: 2020
  15. DOXORUBICIN CITRATE [Concomitant]
     Active Substance: DOXORUBICIN CITRATE
     Dosage: UNK
     Dates: start: 2020
  16. ONCOVIN [Concomitant]
     Active Substance: VINCRISTINE SULFATE
     Dosage: UNK
     Dates: start: 202007
  17. CYTOXAN [Concomitant]
     Active Substance: CYCLOPHOSPHAMIDE
     Dosage: UNK
     Dates: start: 202007
  18. CYTOXAN [Concomitant]
     Active Substance: CYCLOPHOSPHAMIDE
     Dosage: UNK
     Dates: start: 2020
  19. DOXORUBICIN CITRATE [Concomitant]
     Active Substance: DOXORUBICIN CITRATE
     Dosage: UNK
     Dates: start: 2020

REACTIONS (1)
  - Nightmare [Unknown]

NARRATIVE: CASE EVENT DATE: 202007
